FAERS Safety Report 7118293-9 (Version None)
Quarter: 2010Q4

REPORT INFORMATION
  Report Type: 
  Country: None (occurrence: None)
  Receive Date: 20101123
  Receipt Date: 20101111
  Transmission Date: 20110411
  Serious: Yes (Hospitalization, Disabling)
  Sender: FDA-Public Use
  Company Number: JP-SANOFI-AVENTIS-2010SA054992

PATIENT
  Age: 69 Year
  Sex: Male
  Weight: 72 kg

DRUGS (9)
  1. ELPLAT [Suspect]
     Indication: COLON CANCER
     Route: 041
     Dates: start: 20100416, end: 20100416
  2. ELPLAT [Suspect]
     Route: 041
     Dates: start: 20100813, end: 20100813
  3. CALCIUM LEVOFOLINATE [Suspect]
     Indication: COLON CANCER
     Route: 041
     Dates: start: 20100416, end: 20100416
  4. CALCIUM LEVOFOLINATE [Suspect]
     Route: 041
     Dates: start: 20100813, end: 20100813
  5. FLUOROURACIL [Suspect]
     Indication: COLON CANCER
     Route: 040
     Dates: start: 20100416, end: 20100416
  6. FLUOROURACIL [Suspect]
     Route: 041
     Dates: start: 20100416, end: 20100417
  7. FLUOROURACIL [Suspect]
     Route: 040
     Dates: start: 20100813, end: 20100813
  8. FLUOROURACIL [Suspect]
     Route: 041
     Dates: start: 20100813, end: 20100814
  9. DEXAMETHASONE SODIUM PHOSPHATE [Concomitant]
     Indication: PREMEDICATION
     Route: 041
     Dates: start: 20100416, end: 20100813

REACTIONS (3)
  - CEREBRAL INFARCTION [None]
  - NAUSEA [None]
  - VOMITING [None]
